FAERS Safety Report 6616049-4 (Version None)
Quarter: 2010Q1

REPORT INFORMATION
  Report Type: 
  Country: None (occurrence: None)
  Receive Date: 20100305
  Receipt Date: 20100226
  Transmission Date: 20100710
  Serious: Yes (Other)
  Sender: FDA-Public Use
  Company Number: B0631785A

PATIENT
  Sex: Male

DRUGS (6)
  1. NEOTIGASON [Suspect]
     Indication: PSORIASIS
     Route: 048
     Dates: start: 20080601
  2. RABEPRAZOLE SODIUM [Concomitant]
     Dosage: 20MG PER DAY
  3. ACETYLSALICYLIC ACID [Concomitant]
     Dosage: 75MCG PER DAY
  4. AMLODIPINE [Concomitant]
  5. OLMESARTAN [Concomitant]
     Dosage: 40MG PER DAY
  6. SIMVASTATIN [Concomitant]
     Dosage: 40MG PER DAY

REACTIONS (2)
  - BLOOD GLUCOSE INCREASED [None]
  - DIABETES MELLITUS [None]
